FAERS Safety Report 6408179-7 (Version None)
Quarter: 2009Q4

REPORT INFORMATION
  Report Type: 
  Country: None (occurrence: None)
  Receive Date: 20091021
  Receipt Date: 20091012
  Transmission Date: 20100525
  Serious: Yes (Life-Threatening, Hospitalization)
  Sender: FDA-Public Use
  Company Number: JP-AMGEN-US306365

PATIENT
  Sex: Female
  Weight: 34 kg

DRUGS (13)
  1. ENBREL [Suspect]
     Indication: RHEUMATOID ARTHRITIS
     Route: 058
     Dates: start: 20070928, end: 20080703
  2. PREDNISOLONE [Suspect]
     Indication: RHEUMATOID ARTHRITIS
     Route: 048
     Dates: start: 19980101
  3. PROGRAF [Concomitant]
     Indication: RHEUMATOID ARTHRITIS
     Route: 048
     Dates: start: 20080128, end: 20080320
  4. PAXIL [Concomitant]
     Indication: DEPRESSION
     Route: 048
  5. GASMOTIN [Concomitant]
     Indication: GASTRITIS
     Route: 048
  6. LOXONIN [Concomitant]
     Indication: RHEUMATOID ARTHRITIS
     Route: 048
     Dates: end: 20080221
  7. LIPITOR [Concomitant]
     Indication: HYPERLIPIDAEMIA
     Route: 065
  8. ROHYPNOL [Concomitant]
     Indication: INSOMNIA
     Route: 048
  9. ARTIST [Concomitant]
     Indication: ANGINA PECTORIS
     Route: 048
     Dates: start: 20071228, end: 20080214
  10. CELECTOL [Concomitant]
     Indication: ARRHYTHMIA
     Route: 048
     Dates: start: 20080214
  11. MOBIC [Concomitant]
     Indication: RHEUMATOID ARTHRITIS
     Route: 048
     Dates: start: 20080221, end: 20080521
  12. CELECOXIB [Concomitant]
     Indication: RHEUMATOID ARTHRITIS
     Route: 048
     Dates: start: 20080521
  13. TAKEPRON [Concomitant]
     Indication: GASTRIC ULCER
     Route: 048
     Dates: start: 20070928

REACTIONS (5)
  - BRONCHOPULMONARY ASPERGILLOSIS [None]
  - ENTEROCOLITIS INFECTIOUS [None]
  - HYPOPHAGIA [None]
  - PULMONARY TUBERCULOSIS [None]
  - WEIGHT DECREASED [None]
